FAERS Safety Report 6849205-0 (Version None)
Quarter: 2010Q3

REPORT INFORMATION
  Report Type: 
  Country: None (occurrence: None)
  Receive Date: 20100716
  Receipt Date: 20070926
  Transmission Date: 20110219
  Serious: No
  Sender: FDA-Public Use
  Company Number: US-PFIZER INC-2007082004

PATIENT
  Sex: Female
  Weight: 67.1 kg

DRUGS (3)
  1. CHANTIX [Suspect]
     Indication: SMOKING CESSATION THERAPY
     Dates: start: 20070922
  2. DEPO-TESTOSTERONE [Concomitant]
  3. DEPO-ESTRADIOL [Concomitant]

REACTIONS (2)
  - DIZZINESS [None]
  - FATIGUE [None]
